FAERS Safety Report 8044288-7 (Version None)
Quarter: 2012Q1

REPORT INFORMATION
  Report Type: 
  Country: None (occurrence: None)
  Receive Date: 20120113
  Receipt Date: 20120110
  Transmission Date: 20120608
  Serious: Yes (Death)
  Sender: FDA-Public Use
  Company Number: MY-ASTELLAS-2012US000181

PATIENT

DRUGS (1)
  1. TARCEVA [Suspect]
     Indication: LUNG CARCINOMA CELL TYPE UNSPECIFIED STAGE IV
     Dosage: 150 MG, UID/QD
     Route: 048

REACTIONS (1)
  - DEATH [None]
